FAERS Safety Report 8542467-3 (Version None)
Quarter: 2012Q3

REPORT INFORMATION
  Report Type: 
  Country: None (occurrence: None)
  Receive Date: 20120726
  Receipt Date: 20110823
  Transmission Date: 20120928
  Serious: Yes (Other)
  Sender: FDA-Public Use
  Company Number: US-ASTRAZENECA-2009SE19043

PATIENT
  Age: 5038 Day
  Sex: Male
  Weight: 104.3 kg

DRUGS (5)
  1. SOD FLUORIDE [Concomitant]
     Dates: start: 19950325
  2. CEPHALEXIN [Concomitant]
     Dates: start: 19950325
  3. CONCERTA [Concomitant]
     Dosage: 18 MG TO 36 MG
     Dates: start: 19950325
  4. SEROQUEL [Suspect]
     Dosage: 25 MG TO 50 MG
     Route: 048
     Dates: start: 19950325
  5. GEODON [Concomitant]
     Dates: start: 19950325

REACTIONS (5)
  - DIABETIC COMA [None]
  - PANCREATITIS [None]
  - HYPERGLYCAEMIA [None]
  - TYPE 2 DIABETES MELLITUS [None]
  - DIABETIC KETOACIDOSIS [None]
